FAERS Safety Report 24197897 (Version 1)
Quarter: 2024Q3

REPORT INFORMATION
  Report Type: Spontaneous
  Country: PL (occurrence: PL)
  Receive Date: 20240811
  Receipt Date: 20240811
  Transmission Date: 20241017
  Serious: Yes (Life-Threatening, Hospitalization)
  Sender: AUROBINDO
  Company Number: PL-URPL-1-1856-2020

PATIENT
  Age: 47 Year
  Sex: Female
  Weight: 75 kg

DRUGS (1)
  1. QUETIAPINE [Suspect]
     Active Substance: QUETIAPINE
     Indication: Product used for unknown indication
     Dosage: 20 DOSAGE FORM
     Route: 048
     Dates: start: 20200608, end: 20200608

REACTIONS (2)
  - Somnolence [Recovering/Resolving]
  - Toxicity to various agents [Recovering/Resolving]

NARRATIVE: CASE EVENT DATE: 20200608
